FAERS Safety Report 10475984 (Version 1)
Quarter: 2014Q3

REPORT INFORMATION
  Report Type: Spontaneous
  Country: US (occurrence: US)
  Receive Date: 20140925
  Receipt Date: 20140925
  Transmission Date: 20150326
  Serious: No
  Sender: FDA-Public Use
  Company Number: US-GLAXOSMITHKLINE-A1087343A

PATIENT
  Age: 56 Year
  Sex: Male

DRUGS (1)
  1. SEREVENT [Suspect]
     Active Substance: SALMETEROL XINAFOATE
     Indication: PRODUCT USED FOR UNKNOWN INDICATION
     Dosage: 50MCG UNKNOWN
     Route: 065
     Dates: start: 20130606

REACTIONS (1)
  - Ill-defined disorder [Not Recovered/Not Resolved]
